FAERS Safety Report 8981346 (Version 1)
Quarter: 2012Q4

REPORT INFORMATION
  Report Type: 
  Country: US (occurrence: US)
  Receive Date: 20121221
  Receipt Date: 20121221
  Transmission Date: 20130627
  Serious: Yes (Hospitalization)
  Sender: FDA-Public Use
  Company Number: US-BAYER-2012-133518

PATIENT
  Age: 17 Year
  Sex: Female

DRUGS (6)
  1. YASMIN [Suspect]
  2. EFFEXOR [Concomitant]
  3. STRATTERA [Concomitant]
  4. RISPERDAL [Concomitant]
  5. DEPAKOTE [Concomitant]
  6. SEROQUEL [Concomitant]

REACTIONS (1)
  - Deep vein thrombosis [None]
